FAERS Safety Report 5860208-5 (Version None)
Quarter: 2008Q3

REPORT INFORMATION
  Report Type: 
  Country: None (occurrence: None)
  Receive Date: 20080827
  Receipt Date: 20080819
  Transmission Date: 20090109
  Serious: Yes (Hospitalization)
  Sender: FDA-Public Use
  Company Number: US-AMGEN-QUU302683

PATIENT
  Sex: Female

DRUGS (2)
  1. ENBREL [Suspect]
     Indication: JUVENILE ARTHRITIS
     Route: 058
     Dates: start: 20000101
  2. PLAQUENIL [Concomitant]
     Route: 048

REACTIONS (4)
  - ARTHROPOD BITE [None]
  - FOOD POISONING [None]
  - NASOPHARYNGITIS [None]
  - OVARIAN CYST RUPTURED [None]
